FAERS Safety Report 6100545-2 (Version None)
Quarter: 2009Q1

REPORT INFORMATION
  Report Type: 
  Country: None (occurrence: None)
  Receive Date: 20090227
  Receipt Date: 20090227
  Transmission Date: 20090719
  Serious: Yes (Death, Hospitalization, Disabling)
  Sender: FDA-Public Use
  Company Number: None

PATIENT
  Age: 70 Year
  Sex: Male
  Weight: 87 kg

DRUGS (3)
  1. BEVACIZUMAB 10MG/KG [Suspect]
     Indication: PANCREATIC CARCINOMA METASTATIC
     Dosage: 690MG Q2WKS IV
     Route: 042
     Dates: start: 20080228, end: 20090108
  2. GEMCITABINE HCL [Concomitant]
  3. DOCETAXEL [Concomitant]

REACTIONS (7)
  - ABDOMINAL PAIN [None]
  - DEVICE BREAKAGE [None]
  - DEVICE MIGRATION [None]
  - ENTEROCOLITIS INFECTIOUS [None]
  - GASTROINTESTINAL HAEMORRHAGE [None]
  - LARGE INTESTINE PERFORATION [None]
  - POST PROCEDURAL COMPLICATION [None]
